FAERS Safety Report 12711773 (Version 2)
Quarter: 2016Q3

REPORT INFORMATION
  Report Type: Spontaneous
  Country: None (occurrence: RU)
  Receive Date: 20160902
  Receipt Date: 20160930
  Transmission Date: 20161109
  Serious: Yes (Hospitalization)
  Sender: FDA-Public Use
  Company Number: RU-MERCK KGAA-1056983

PATIENT

DRUGS (1)
  1. NOVOTHYROX [Suspect]
     Active Substance: LEVOTHYROXINE SODIUM

REACTIONS (6)
  - Suspected counterfeit product [None]
  - Drug dose omission [None]
  - Cerebral ischaemia [None]
  - Drug ineffective [None]
  - Blood thyroid stimulating hormone increased [None]
  - Headache [None]
